FAERS Safety Report 8191257-2 (Version None)
Quarter: 2012Q1

REPORT INFORMATION
  Report Type: 
  Country: None (occurrence: None)
  Receive Date: 20120307
  Receipt Date: 20120221
  Transmission Date: 20120608
  Serious: Yes (Life-Threatening, Hospitalization)
  Sender: FDA-Public Use
  Company Number: FR-UCBSA-024276

PATIENT
  Age: 28 Year
  Sex: Female
  Weight: 45 kg

DRUGS (12)
  1. CYCLOSERINE [Concomitant]
  2. MOXIFLOXACIN [Concomitant]
  3. KEPPRA [Suspect]
     Indication: GRAND MAL CONVULSION
     Route: 048
     Dates: start: 20101020, end: 20101124
  4. FLAGYL [Suspect]
     Route: 048
     Dates: start: 20101110, end: 20101116
  5. KALETRA [Concomitant]
  6. ZIAGEN [Concomitant]
  7. ETHAMBUTOL HYDROCHLORIDE [Concomitant]
  8. VIREAD [Concomitant]
  9. PARA AMINOSALICYLIC ACID [Concomitant]
  10. URBANYL [Suspect]
     Indication: CONVULSION
     Route: 048
     Dates: start: 20101020, end: 20101117
  11. VFEND [Suspect]
     Indication: EAR INFECTION
     Route: 048
     Dates: start: 20101018, end: 20101113
  12. PREDNISONE TAB [Concomitant]

REACTIONS (9)
  - PNEUMOCOCCAL SEPSIS [None]
  - HISTIOCYTOSIS HAEMATOPHAGIC [None]
  - PSEUDOMONAL SEPSIS [None]
  - ANTIBIOTIC RESISTANT STAPHYLOCOCCUS TEST POSITIVE [None]
  - OEDEMA [None]
  - ACUTE RESPIRATORY DISTRESS SYNDROME [None]
  - CLOSTRIDIUM DIFFICILE COLITIS [None]
  - TOXIC EPIDERMAL NECROLYSIS [None]
  - EOSINOPHILIA [None]
